FAERS Safety Report 16997140 (Version 1)
Quarter: 2019Q4

REPORT INFORMATION
  Report Type: Spontaneous
  Country: US (occurrence: US)
  Receive Date: 20191029
  Receipt Date: 20191029
  Transmission Date: 20200122
  Serious: Yes (Hospitalization)
  Sender: FDA-Public Use
  Company Number: None

PATIENT
  Age: 54 Year
  Sex: Female

DRUGS (2)
  1. TYLENOL [Concomitant]
     Active Substance: ACETAMINOPHEN
  2. UDENYCA [Suspect]
     Active Substance: PEGFILGRASTIM-CBQV
     Indication: BREAST CANCER FEMALE
     Dosage: ?          OTHER DOSE:6/0.6ML;OTHER FREQUENCY:AS DIRECTED;?
     Route: 058
     Dates: start: 20190905

REACTIONS (1)
  - Streptococcal infection [None]

NARRATIVE: CASE EVENT DATE: 201910
